FAERS Safety Report 17768706 (Version 4)
Quarter: 2020Q4

REPORT INFORMATION
  Report Type: Report from Study
  Country: US (occurrence: US)
  Receive Date: 20200512
  Receipt Date: 20201201
  Transmission Date: 20210113
  Serious: Yes (Hospitalization, Other)
  Sender: FDA-Public Use
  Company Number: US-ROCHE-2550922

PATIENT
  Age: 51 Year
  Sex: Female
  Weight: 54.9 kg

DRUGS (10)
  1. DOXYCYCLIN [Concomitant]
     Active Substance: DOXYCYCLINE
     Dosage: FOR 5 DAYS.
  2. TGR 1202 [Suspect]
     Active Substance: UMBRALISIB
     Indication: B-CELL LYMPHOMA REFRACTORY
  3. FLAGYL [Concomitant]
     Active Substance: METRONIDAZOLE\METRONIDAZOLE HYDROCHLORIDE
  4. OBINUTUZUMAB. [Suspect]
     Active Substance: OBINUTUZUMAB
     Indication: B-CELL LYMPHOMA RECURRENT
     Dosage: ON 04/AUG/2020, SHE RECEIVED LAST DOSE OF INTRAVENOUS OBINUTUZUMAB PRIOR TO THE ONSET OF SERIOUS ADV
     Route: 042
     Dates: start: 20190830
  5. OBINUTUZUMAB. [Suspect]
     Active Substance: OBINUTUZUMAB
     Indication: B-CELL LYMPHOMA REFRACTORY
  6. TGR 1202 [Suspect]
     Active Substance: UMBRALISIB
     Indication: B-CELL LYMPHOMA RECURRENT
     Dosage: ON 01/SEP/2020, SHE RECEIVED LAST DOSE OF ORAL  TGR 1202 PRIOR TO THE ONSET OF SERIOUS ADVERSE EVENT
     Route: 048
     Dates: start: 20190830
  7. PREDNISONE. [Concomitant]
     Active Substance: PREDNISONE
  8. FLUCONAZOLE. [Concomitant]
     Active Substance: FLUCONAZOLE
  9. CEFPODOXIME [Concomitant]
     Active Substance: CEFPODOXIME
  10. ZITHROMAX [Concomitant]
     Active Substance: AZITHROMYCIN DIHYDRATE
     Dosage: FOR 5 DAYS

REACTIONS (5)
  - Enterocolitis infectious [Recovering/Resolving]
  - Diarrhoea [Recovered/Resolved]
  - Dyspnoea [Recovered/Resolved]
  - Hypoxia [Recovered/Resolved]
  - Pneumonia [Recovered/Resolved]

NARRATIVE: CASE EVENT DATE: 20200202
